FAERS Safety Report 4509861-9 (Version None)
Quarter: 2004Q4

REPORT INFORMATION
  Report Type: 
  Country: None (occurrence: None)
  Receive Date: 20041119
  Receipt Date: 20041101
  Transmission Date: 20050328
  Serious: Yes (Other)
  Sender: FDA-Public Use
  Company Number: USA041182806

PATIENT
  Age: 68 Year
  Sex: Female
  Weight: 52 kg

DRUGS (8)
  1. EVISTA [Suspect]
     Indication: BONE DISORDER
     Dosage: 60 MG/1 DAY
  2. FORTEO [Suspect]
     Indication: OSTEOPOROSIS
     Dosage: 20 UG/1 DAY
     Dates: start: 20041030
  3. REQUIP [Concomitant]
  4. NIFEDIPINE [Concomitant]
  5. ZOCOR (SIMVASTATIN RATIOPHARM) [Concomitant]
  6. NEXIUM [Concomitant]
  7. AMBIEN [Concomitant]
  8. CALCIUM [Concomitant]

REACTIONS (3)
  - HEART RATE INCREASED [None]
  - PARKINSON'S DISEASE [None]
  - PHARMACEUTICAL PRODUCT COMPLAINT [None]
